FAERS Safety Report 25224275 (Version 1)
Quarter: 2025Q2

REPORT INFORMATION
  Report Type: Spontaneous
  Country: JP (occurrence: JP)
  Receive Date: 20250422
  Receipt Date: 20250422
  Transmission Date: 20250717
  Serious: Yes (Other)
  Sender: ASTELLAS
  Company Number: JP-ASTELLAS-2025-AER-021960

PATIENT
  Sex: Male

DRUGS (1)
  1. PADCEV [Suspect]
     Active Substance: ENFORTUMAB VEDOTIN-EJFV
     Indication: Transitional cell carcinoma metastatic
     Route: 042
     Dates: start: 20250414, end: 202504

REACTIONS (1)
  - Cytokine release syndrome [Not Recovered/Not Resolved]

NARRATIVE: CASE EVENT DATE: 20250416
